FAERS Safety Report 9899093 (Version 1)
Quarter: 2014Q1

REPORT INFORMATION
  Report Type: Spontaneous
  Country: US (occurrence: US)
  Receive Date: 20140214
  Receipt Date: 20140214
  Transmission Date: 20141002
  Serious: No
  Sender: FDA-Public Use
  Company Number: US-GILEAD-2011-0045697

PATIENT
  Age: 43 Year
  Sex: Female

DRUGS (3)
  1. LETAIRIS [Suspect]
     Indication: PRODUCT USED FOR UNKNOWN INDICATION
     Dosage: 5 MG, UNK
     Route: 048
     Dates: start: 20080328
  2. ADCIRCA [Concomitant]
  3. VENTAVIS [Concomitant]

REACTIONS (5)
  - Nightmare [Unknown]
  - Depression [Unknown]
  - Dizziness [Unknown]
  - Pain in jaw [Unknown]
  - Headache [Unknown]
